FAERS Safety Report 14511818 (Version 5)
Quarter: 2018Q2

REPORT INFORMATION
  Report Type: Spontaneous
  Country: US (occurrence: US)
  Receive Date: 20180209
  Receipt Date: 20180531
  Transmission Date: 20180711
  Serious: Yes (Death, Hospitalization)
  Sender: FDA-Public Use
  Company Number: US-TAKEDA-2018MPI001334

PATIENT
  Age: 59 Year
  Sex: Male
  Weight: 68.48 kg

DRUGS (2)
  1. NINLARO [Suspect]
     Active Substance: IXAZOMIB CITRATE
     Indication: PLASMA CELL MYELOMA
     Dosage: 3 MG, UNK
     Route: 048
     Dates: start: 20171108
  2. POMALYST [Concomitant]
     Active Substance: POMALIDOMIDE
     Indication: PLASMA CELL MYELOMA
     Dosage: 1 MG, UNK
     Route: 065

REACTIONS (9)
  - Joint swelling [Unknown]
  - Cellulitis [Unknown]
  - Speech disorder [Unknown]
  - Pruritus [Unknown]
  - Peripheral swelling [Unknown]
  - Death [Fatal]
  - Asthenia [Unknown]
  - Blood calcium increased [Unknown]
  - Off label use [Unknown]

NARRATIVE: CASE EVENT DATE: 20180410
